FAERS Safety Report 6900782-0 (Version None)
Quarter: 2010Q3

REPORT INFORMATION
  Report Type: 
  Country: None (occurrence: None)
  Receive Date: 20100730
  Receipt Date: 20100722
  Transmission Date: 20110219
  Serious: Yes (Other)
  Sender: FDA-Public Use
  Company Number: 2010MA001107

PATIENT
  Sex: Female

DRUGS (3)
  1. DIAZEPAM TABLETS USP, 5 MG (PUREPAC) (DIAZEPAM) [Suspect]
     Indication: EPILEPSY
     Dosage: 5 MG;RTL
     Route: 054
  2. CON MEDS [Concomitant]
  3. PREV MEDS [Concomitant]

REACTIONS (2)
  - CYANOSIS [None]
  - PRODUCT SOLUBILITY ABNORMAL [None]
